FAERS Safety Report 8036547-9 (Version None)
Quarter: 2012Q1

REPORT INFORMATION
  Report Type: 
  Country: None (occurrence: None)
  Receive Date: 20120111
  Receipt Date: 20120105
  Transmission Date: 20120608
  Serious: Yes (Other)
  Sender: FDA-Public Use
  Company Number: US-PFIZER INC-2012003933

PATIENT
  Sex: Female
  Weight: 61.678 kg

DRUGS (9)
  1. DILANTIN [Suspect]
     Indication: TRIGEMINAL NEURALGIA
     Dosage: 300 MG, 1X/DAY
     Route: 048
     Dates: start: 19950101
  2. TOPROL-XL [Concomitant]
     Indication: CARDIAC DISORDER
     Dosage: UNK
  3. VITAMIN D [Concomitant]
     Dosage: UNK
  4. COMBIVENT [Concomitant]
     Dosage: UNK
  5. NORVASC [Concomitant]
     Dosage: UNK
  6. DILANTIN [Suspect]
     Dosage: UNK
     Route: 048
  7. CALCIUM CARBONATE [Concomitant]
     Dosage: UNK
  8. ASPIRIN [Concomitant]
     Indication: CARDIAC DISORDER
     Dosage: 81 MG
  9. VITAMIN C [Concomitant]
     Dosage: UNK

REACTIONS (7)
  - BONE DENSITY DECREASED [None]
  - GASTROOESOPHAGEAL REFLUX DISEASE [None]
  - OSTEOPOROSIS [None]
  - BLOOD TEST ABNORMAL [None]
  - VISUAL IMPAIRMENT [None]
  - BODY HEIGHT DECREASED [None]
  - BLOOD CHOLESTEROL INCREASED [None]
